FAERS Safety Report 6314891-0 (Version None)
Quarter: 2009Q3

REPORT INFORMATION
  Report Type: 
  Country: None (occurrence: None)
  Receive Date: 20090818
  Receipt Date: 20090818
  Transmission Date: 20100115
  Serious: Yes (Hospitalization)
  Sender: FDA-Public Use
  Company Number: None

PATIENT
  Sex: Male
  Weight: 36 kg

DRUGS (6)
  1. ONCASPAR [Suspect]
     Dosage: 3225 IU
     Dates: end: 20090720
  2. VINCRISTINE SULFATE [Suspect]
     Dosage: 3.8 MG
  3. CYCLOPHOSPHAMIDE [Suspect]
     Dosage: 2580 MG
     Dates: end: 20090804
  4. CYTARABINE [Suspect]
     Dosage: 1191 MG
     Dates: end: 20090807
  5. MERCAPTOPURINE [Suspect]
     Dosage: 2100 MG
  6. METHOTREXATE [Suspect]
     Dosage: 60 MG
     Dates: end: 20090728

REACTIONS (4)
  - BLOOD CREATININE INCREASED [None]
  - HYPOTENSION [None]
  - PANCREATITIS [None]
  - SINUS TACHYCARDIA [None]
